FAERS Safety Report 9460328 (Version 2)
Quarter: 2013Q4

REPORT INFORMATION
  Report Type: Other
  Country: AU (occurrence: AU)
  Receive Date: 20130815
  Receipt Date: 20131016
  Transmission Date: 20140711
  Serious: Yes (Other)
  Sender: FDA-Public Use
  Company Number: AU-NAPPMUNDI-USA-2013-0105247

PATIENT
  Age: 80 Year
  Sex: Female

DRUGS (10)
  1. OXYCONTIN (NDA 22-272) [Suspect]
     Indication: PROCEDURAL PAIN
     Dosage: 5 MG, BID
  2. OXYCONTIN (NDA 22-272) [Interacting]
     Dosage: 10 MG, BID
     Route: 048
  3. CIPROFLOXACIN [Interacting]
     Indication: PRODUCT USED FOR UNKNOWN INDICATION
     Dosage: 500 MG, BID
  4. PARACETAMOL [Concomitant]
     Indication: PRODUCT USED FOR UNKNOWN INDICATION
  5. SOLIFENACIN [Concomitant]
     Indication: PRODUCT USED FOR UNKNOWN INDICATION
  6. ASPIRIN [Concomitant]
     Indication: PRODUCT USED FOR UNKNOWN INDICATION
  7. THIAMINE [Concomitant]
     Indication: PRODUCT USED FOR UNKNOWN INDICATION
  8. CALCIUM [Concomitant]
     Indication: PRODUCT USED FOR UNKNOWN INDICATION
  9. CHOLECALCIFEROL [Concomitant]
     Indication: PRODUCT USED FOR UNKNOWN INDICATION
  10. METOPROLOL                         /00376902/ [Concomitant]
     Indication: PRODUCT USED FOR UNKNOWN INDICATION

REACTIONS (3)
  - Myoclonus [Recovered/Resolved]
  - Drug interaction [Unknown]
  - Inadequate analgesia [Unknown]
